FAERS Safety Report 7647370-9 (Version None)
Quarter: 2011Q3

REPORT INFORMATION
  Report Type: 
  Country: None (occurrence: None)
  Receive Date: 20110801
  Receipt Date: 20110711
  Transmission Date: 20111222
  Serious: Yes (Hospitalization)
  Sender: FDA-Public Use
  Company Number: SE-ROCHE-792994

PATIENT

DRUGS (3)
  1. CAPECITABINE [Suspect]
     Dosage: LAST DOSE PRIOR TO SAE: 26 JUNE 2011
     Route: 065
     Dates: start: 20110626
  2. IRINOTECAN HCL [Suspect]
     Dosage: LAST DOSE PRIOR TO SAE: 26 JUNE 2011
     Route: 065
     Dates: start: 20110626
  3. BEVACIZUMAB [Suspect]
     Dosage: LAST DOSE PRIOR TO SAE: 26 JUNE 2011
     Route: 065
     Dates: start: 20110623

REACTIONS (1)
  - GENERAL PHYSICAL CONDITION ABNORMAL [None]
